FAERS Safety Report 19980878 (Version 2)
Quarter: 2022Q1

REPORT INFORMATION
  Report Type: Other
  Country: US (occurrence: US)
  Receive Date: 20211021
  Receipt Date: 20220124
  Transmission Date: 20220423
  Serious: No
  Sender: FDA-Public Use
  Company Number: US-BIOVITRUM-2021US9180

PATIENT
  Age: 63 Year
  Sex: Female

DRUGS (1)
  1. KINERET [Suspect]
     Active Substance: ANAKINRA
     Indication: Sjogren^s syndrome
     Route: 058
     Dates: start: 20210915, end: 20220114

REACTIONS (11)
  - Dry mouth [Unknown]
  - Lip dry [Unknown]
  - Oral discomfort [Unknown]
  - Tongue erythema [Unknown]
  - Transient lingual papillitis [Unknown]
  - Musculoskeletal stiffness [Unknown]
  - Loss of personal independence in daily activities [Unknown]
  - Upper limb fracture [Unknown]
  - Adverse drug reaction [Unknown]
  - Gastroenteritis viral [Unknown]
  - Off label use [Recovered/Resolved]

NARRATIVE: CASE EVENT DATE: 20210915
